FAERS Safety Report 10233526 (Version 1)
Quarter: 2014Q2

REPORT INFORMATION
  Report Type: Spontaneous
  Country: IT (occurrence: IT)
  Receive Date: 20140612
  Receipt Date: 20140612
  Transmission Date: 20141212
  Serious: Yes (Other)
  Sender: FDA-Public Use
  Company Number: IT-DSJP-DSE-2014-111216

PATIENT
  Sex: 0

DRUGS (1)
  1. PLAUNAC 20 MG [Suspect]
     Indication: PRODUCT USED FOR UNKNOWN INDICATION
     Route: 048
     Dates: start: 20140101

REACTIONS (2)
  - Syncope [Recovering/Resolving]
  - Sinus arrhythmia [Recovering/Resolving]
